FAERS Safety Report 16988289 (Version 1)
Quarter: 2019Q4

REPORT INFORMATION
  Report Type: Spontaneous
  Country: US (occurrence: US)
  Receive Date: 20191104
  Receipt Date: 20191104
  Transmission Date: 20200122
  Serious: Yes (Hospitalization)
  Sender: FDA-Public Use
  Company Number: US-TORRENT-00009445

PATIENT
  Age: 36 Year
  Sex: Male

DRUGS (6)
  1. PROPOFOL. [Suspect]
     Active Substance: PROPOFOL
     Indication: ANAESTHESIA
     Dosage: UNKNOWN
  2. ARIPIPRAZOLE. [Suspect]
     Active Substance: ARIPIPRAZOLE
     Indication: ANXIETY
     Dosage: UNKNOWN
  3. HYDROMORPHONE [Suspect]
     Active Substance: HYDROMORPHONE
     Indication: ANAESTHESIA
     Dosage: UNKNOWN
  4. MEPERIDINE [Suspect]
     Active Substance: MEPERIDINE
     Indication: CHILLS
     Dosage: UNKNOWN
  5. SERTRALINE [Suspect]
     Active Substance: SERTRALINE HYDROCHLORIDE
     Indication: ANXIETY
     Dosage: UNKNOWN
  6. MIDAZOLAM [Concomitant]
     Active Substance: MIDAZOLAM HYDROCHLORIDE
     Indication: ANAESTHESIA
     Dosage: UNKNOWN

REACTIONS (3)
  - Blood creatinine increased [Recovered/Resolved]
  - Blood creatine phosphokinase increased [Recovered/Resolved]
  - Serotonin syndrome [Recovered/Resolved]
